FAERS Safety Report 13795256 (Version 1)
Quarter: 2017Q3

REPORT INFORMATION
  Report Type: Not Available
  Country: US (occurrence: US)
  Receive Date: 20170726
  Receipt Date: 20170726
  Transmission Date: 20171127
  Serious: No
  Sender: FDA-Public Use
  Company Number: US-NEUROCRINE BIOSCIENCES INC.-2017NBI00390

PATIENT
  Age: 81 Year
  Sex: Female

DRUGS (3)
  1. INGREZZA [Suspect]
     Active Substance: VALBENAZINE
     Dosage: EVERY THIRD DAY
     Route: 048
     Dates: start: 201706, end: 201706
  2. INGREZZA [Suspect]
     Active Substance: VALBENAZINE
     Indication: PRODUCT USED FOR UNKNOWN INDICATION
     Route: 048
     Dates: start: 20170608, end: 201706
  3. INGREZZA [Suspect]
     Active Substance: VALBENAZINE
     Dosage: EVERY OTHER DAY
     Route: 048
     Dates: start: 201706

REACTIONS (2)
  - Heart rate decreased [Not Recovered/Not Resolved]
  - Tremor [Recovering/Resolving]

NARRATIVE: CASE EVENT DATE: 20170608
